FAERS Safety Report 19810321 (Version 1)
Quarter: 2021Q3

REPORT INFORMATION
  Report Type: Spontaneous
  Country: NL (occurrence: NL)
  Receive Date: 20210909
  Receipt Date: 20210909
  Transmission Date: 20211014
  Serious: Yes (Hospitalization)
  Sender: FDA-Public Use
  Company Number: NL-MYLANLABS-2021M1058772

PATIENT
  Sex: Male
  Weight: 79.8 kg

DRUGS (18)
  1. AMOXICILLINE/CLAVULAANZUUR [Concomitant]
     Active Substance: AMOXICILLIN\CLAVULANATE POTASSIUM
     Dosage: TABLET, 500/125 MG (MILLIGRAM)
  2. ROSUVASTATINE                      /01588601/ [Concomitant]
     Active Substance: ROSUVASTATIN
     Dosage: TABLET, 10 MG (MILLIGRAM)
  3. TEMAZEPAM. [Concomitant]
     Active Substance: TEMAZEPAM
     Dosage: CAPSULE, 10 MG (MILLIGRAM)
  4. METOPROLOL SUCCINATE. [Concomitant]
     Active Substance: METOPROLOL SUCCINATE
     Dosage: TABLET MET GEREGULEERDE AFGIFTE, 100 MG (MILLIGRAM)
  5. OMEPRAZOLE. [Suspect]
     Active Substance: OMEPRAZOLE
     Indication: PRODUCT USED FOR UNKNOWN INDICATION
     Dosage: 40 MILLIGRAM, QD (1X PER DAY 1 PIECE)
     Dates: start: 20130116, end: 20210223
  6. EPLERENONE. [Concomitant]
     Active Substance: EPLERENONE
     Dosage: TABLET, 25 MG (MILLIGRAM)
  7. LISINOPRIL. [Concomitant]
     Active Substance: LISINOPRIL
     Dosage: TABLET, 10 MG (MILLIGRAM)
  8. FAMOTIDINE. [Concomitant]
     Active Substance: FAMOTIDINE
     Dosage: TABLET, 20 MG (MILLIGRAM)
  9. BUMETANIDE. [Concomitant]
     Active Substance: BUMETANIDE
     Dosage: TABLET, 1 MG (MILLIGRAM)
  10. MAGNESIUM HYDROXIDE. [Concomitant]
     Active Substance: MAGNESIUM HYDROXIDE
     Dosage: KAUWTABLET, 724 MG (MILLIGRAM)
  11. NITROGLYCERINE [Concomitant]
     Active Substance: NITROGLYCERIN
     Dosage: SPRAY, 0,4 MG/DOSIS (MILLIGRAM PER DOSIS)
  12. METOPROLOL TARTRATE. [Concomitant]
     Active Substance: METOPROLOL TARTRATE
     Dosage: TABLET MET GEREGULEERDE AFGIFTE, 200 MG (MILLIGRAM)
  13. IPRATROPIUM [Concomitant]
     Active Substance: IPRATROPIUM
     Dosage: AEROSOL, 20 ?G/DOSIS (MICROGRAM PER DOSIS)
  14. PROMOCARD [Concomitant]
     Active Substance: ISOSORBIDE MONONITRATE
     Dosage: TABLET MET GEREGULEERDE AFGIFTE, 30 MG (MILLIGRAM)
  15. SALMETEROL [Concomitant]
     Active Substance: SALMETEROL
     Dosage: AEROSOL, 25 ?G/DOSIS (MICROGRAM PER DOSIS)
  16. ACENOCOUMAROL [Concomitant]
     Active Substance: ACENOCOUMAROL
     Dosage: TABLET, 1 MG (MILLIGRAM)
  17. CICLESONIDE [Concomitant]
     Active Substance: CICLESONIDE
     Dosage: AEROSOL, 160 ?G/DOSIS (MICROGRAM PER DOSIS)
  18. SALBUTAMOL [Concomitant]
     Active Substance: ALBUTEROL
     Dosage: VERNEVELVLOEISTOF, 1 MG/ML (MILLIGRAM PER MILLILITER)

REACTIONS (4)
  - Hypomagnesaemia [Recovered/Resolved]
  - Hypocalcaemia [Recovered/Resolved]
  - Hypokalaemia [Recovered/Resolved]
  - Ventricular tachycardia [Recovered/Resolved]
